FAERS Safety Report 10694913 (Version 1)
Quarter: 2015Q1

REPORT INFORMATION
  Report Type: Report from Study
  Country: ES (occurrence: ES)
  Receive Date: 20150107
  Receipt Date: 20150107
  Transmission Date: 20150721
  Serious: Yes (Hospitalization)
  Sender: FDA-Public Use
  Company Number: ES-SA-2015SA000925

PATIENT
  Age: 90 Year
  Sex: Female

DRUGS (4)
  1. SEGURIL [Suspect]
     Active Substance: FUROSEMIDE
     Indication: HYPERTENSION
     Route: 048
     Dates: start: 20140101, end: 20140607
  2. LINAGLIPTIN/METFORMIN [Interacting]
     Active Substance: LINAGLIPTIN\METFORMIN HYDROCHLORIDE
     Indication: DIABETES MELLITUS
     Dosage: 850/2.5 MG, TWICE A DAY
     Route: 048
     Dates: start: 20140101, end: 20140607
  3. BISOPROLOL FUMARATE. [Concomitant]
     Active Substance: BISOPROLOL FUMARATE
     Indication: HYPERTENSION
     Dosage: 2.5 MG, 2 VECES AL DIA
     Route: 048
     Dates: start: 20140101, end: 20140607
  4. DIGOXIN. [Interacting]
     Active Substance: DIGOXIN
     Indication: ATRIAL FIBRILLATION
     Route: 048
     Dates: start: 20140523, end: 20140607

REACTIONS (3)
  - Hyperlactacidaemia [Recovered/Resolved]
  - Prerenal failure [Recovered/Resolved]
  - Toxicity to various agents [Recovered/Resolved with Sequelae]

NARRATIVE: CASE EVENT DATE: 20140603
